FAERS Safety Report 13857883 (Version 2)
Quarter: 2017Q3

REPORT INFORMATION
  Report Type: Spontaneous
  Country: US (occurrence: US)
  Receive Date: 20170811
  Receipt Date: 20170929
  Transmission Date: 20171127
  Serious: No
  Sender: FDA-Public Use
  Company Number: US-BIOGEN-2017BI00444689

PATIENT
  Sex: Female

DRUGS (1)
  1. TECFIDERA [Suspect]
     Active Substance: DIMETHYL FUMARATE
     Indication: MULTIPLE SCLEROSIS
     Route: 048
     Dates: start: 20170510

REACTIONS (10)
  - Gait disturbance [Unknown]
  - Muscle tightness [Unknown]
  - Multiple sclerosis relapse [Unknown]
  - Discomfort [Unknown]
  - Musculoskeletal discomfort [Unknown]
  - Pain in extremity [Unknown]
  - Myalgia [Unknown]
  - Limb discomfort [Unknown]
  - Drug ineffective [Unknown]
  - Peripheral swelling [Unknown]
